FAERS Safety Report 17241849 (Version 1)
Quarter: 2020Q1

REPORT INFORMATION
  Report Type: Spontaneous
  Country: US (occurrence: US)
  Receive Date: 20200107
  Receipt Date: 20200107
  Transmission Date: 20200409
  Serious: Yes (Hospitalization, Other)
  Sender: FDA-Public Use
  Company Number: US-SUNOVION-2019SUN005653

PATIENT
  Age: 75 Year
  Sex: Female
  Weight: 58.96 kg

DRUGS (3)
  1. LEVALBUTEROL TARTRATE. [Suspect]
     Active Substance: LEVALBUTEROL TARTRATE
     Dosage: 2 (45 MCG) PUFFS, QID
     Route: 055
     Dates: start: 201912
  2. LEVALBUTEROL TARTRATE. [Suspect]
     Active Substance: LEVALBUTEROL TARTRATE
     Indication: CHRONIC OBSTRUCTIVE PULMONARY DISEASE
     Dosage: UNK
     Route: 055
  3. VENTOLIN [Concomitant]
     Active Substance: ALBUTEROL SULFATE

REACTIONS (3)
  - Gastrointestinal stoma complication [Unknown]
  - Off label use [Unknown]
  - Thrombosis [Unknown]

NARRATIVE: CASE EVENT DATE: 20191227
